FAERS Safety Report 5931889-2 (Version None)
Quarter: 2008Q4

REPORT INFORMATION
  Report Type: 
  Country: None (occurrence: None)
  Receive Date: 20081027
  Receipt Date: 20081013
  Transmission Date: 20090506
  Serious: Yes (Other)
  Sender: FDA-Public Use
  Company Number: ZA-PFIZER INC-2008085334

PATIENT
  Sex: Male

DRUGS (5)
  1. MINIDIAB [Suspect]
     Indication: TYPE 2 DIABETES MELLITUS
     Route: 048
     Dates: start: 20080814
  2. METFORMIN HYDROCHLORIDE [Concomitant]
     Indication: TYPE 2 DIABETES MELLITUS
     Route: 048
  3. COXFLAM [Concomitant]
     Indication: OSTEOARTHRITIS
     Route: 048
  4. COAPROVEL [Concomitant]
     Route: 048
     Dates: start: 20080709
  5. MELOXICAM [Concomitant]

REACTIONS (2)
  - NEPHROLITHIASIS [None]
  - PYELONEPHRITIS [None]
